FAERS Safety Report 24417650 (Version 1)
Quarter: 2024Q4

REPORT INFORMATION
  Report Type: Spontaneous
  Country: US (occurrence: US)
  Receive Date: 20241009
  Receipt Date: 20241009
  Transmission Date: 20250114
  Serious: Yes (Other)
  Sender: JOHNSON AND JOHNSON
  Company Number: US-JNJFOC-20241000239

PATIENT
  Age: 69 Year
  Sex: Female

DRUGS (2)
  1. XARELTO [Suspect]
     Active Substance: RIVAROXABAN
     Indication: Product used for unknown indication
     Route: 048
  2. AZITHROMYCIN [Suspect]
     Active Substance: AZITHROMYCIN
     Indication: Streptococcal infection
     Route: 065
     Dates: start: 20240923, end: 20240928

REACTIONS (4)
  - Neuropathy peripheral [Unknown]
  - Streptococcal infection [Not Recovered/Not Resolved]
  - Diarrhoea [Unknown]
  - Eating disorder [Unknown]

NARRATIVE: CASE EVENT DATE: 20240901
